FAERS Safety Report 25404091 (Version 1)
Quarter: 2025Q2

REPORT INFORMATION
  Report Type: Spontaneous
  Country: PL (occurrence: PL)
  Receive Date: 20250606
  Receipt Date: 20250606
  Transmission Date: 20250716
  Serious: Yes (Other)
  Sender: NOVO NORDISK
  Company Number: PL-NOVOPROD-1444414

PATIENT
  Sex: Female

DRUGS (1)
  1. OZEMPIC [Suspect]
     Active Substance: SEMAGLUTIDE
     Indication: Weight control
     Dates: start: 2023

REACTIONS (9)
  - Gastritis erosive [Unknown]
  - Malaise [Unknown]
  - Alopecia [Unknown]
  - Bone disorder [Unknown]
  - Apathy [Unknown]
  - Irritability [Unknown]
  - Muscle atrophy [Unknown]
  - Abdominal pain upper [Unknown]
  - Off label use [Unknown]
